FAERS Safety Report 10171976 (Version 1)
Quarter: 2014Q2

REPORT INFORMATION
  Report Type: Spontaneous
  Country: US (occurrence: US)
  Receive Date: 20140515
  Receipt Date: 20140515
  Transmission Date: 20141212
  Serious: No
  Sender: FDA-Public Use
  Company Number: US-PFIZER INC-2014131225

PATIENT
  Age: 62 Year
  Sex: 0

DRUGS (1)
  1. GABAPENTIN [Suspect]
     Dosage: 100 MG, UNK

REACTIONS (2)
  - Movement disorder [Unknown]
  - Communication disorder [Unknown]
